FAERS Safety Report 9768577 (Version 1)
Quarter: 2013Q4

REPORT INFORMATION
  Report Type: Spontaneous
  Country: US (occurrence: US)
  Receive Date: 20131218
  Receipt Date: 20131218
  Transmission Date: 20140711
  Serious: Yes (Other)
  Sender: FDA-Public Use
  Company Number: US-ROCHE-1320608

PATIENT
  Age: 27 Year
  Sex: Male

DRUGS (7)
  1. PEG-INTERFERON ALFA 2A [Suspect]
     Indication: HEPATITIS C
     Dosage: SINGLE INJECTION
     Route: 058
  2. RIBAVIRIN [Suspect]
     Indication: HEPATITIS C
     Dosage: DOSE: WEIGHT-BASED RIBAVIRIN EXCEPT IN PATIENTS WITH COEXISTENT HEMATOLOGIC CONDITIONS IN WHOM FIXED
     Route: 065
  3. TELAPREVIR [Suspect]
     Indication: HEPATITIS C
     Dosage: TWO TABLETS EVERY 8 HOURLY, FOR THE FIRST 12 WEEKS
     Route: 065
  4. RITONAVIR [Concomitant]
     Indication: HIV INFECTION
     Route: 065
  5. TENOFOVIR [Concomitant]
     Indication: HIV INFECTION
     Route: 065
  6. EMTRICITABINE [Concomitant]
     Indication: HIV INFECTION
     Route: 065
  7. ATAZANAVIR [Concomitant]

REACTIONS (1)
  - Drug abuse [Unknown]
